FAERS Safety Report 21198120 (Version 2)
Quarter: 2022Q4

REPORT INFORMATION
  Report Type: Report from Study
  Country: US (occurrence: US)
  Receive Date: 20220811
  Receipt Date: 20221014
  Transmission Date: 20230113
  Serious: Yes (Death, Hospitalization, Other)
  Sender: FDA-Public Use
  Company Number: US-BRISTOL-MYERS SQUIBB COMPANY-2022-086271

PATIENT
  Age: 67 Year
  Sex: Female

DRUGS (17)
  1. PACLITAXEL [Suspect]
     Active Substance: PACLITAXEL
     Indication: Pancreatic carcinoma metastatic
     Route: 042
     Dates: start: 20211216
  2. GEMCITABINE [Suspect]
     Active Substance: GEMCITABINE
     Indication: Pancreatic carcinoma metastatic
     Dosage: 1000 MG/M2
     Route: 042
     Dates: start: 20211216
  3. BATIRAXCEPT [Suspect]
     Active Substance: BATIRAXCEPT
     Indication: Pancreatic carcinoma metastatic
     Route: 042
     Dates: start: 20211216
  4. MS CONTIN [Concomitant]
     Active Substance: MORPHINE SULFATE
     Indication: Abdominal pain
     Dosage: 30 MG ORALLY THREE TIMES DAILY
     Route: 048
     Dates: start: 20211207
  5. MS CONTIN [Concomitant]
     Active Substance: MORPHINE SULFATE
     Dosage: 15 MG ORALLY EVERY 6 HOURS AS NEEDED
     Route: 048
     Dates: start: 20211216
  6. MS CONTIN [Concomitant]
     Active Substance: MORPHINE SULFATE
     Dosage: EXTENDED RELEASE, 30 MG ORALLY THREE TIMES A DAY
     Dates: start: 20220118
  7. ROSUVASTATIN [Concomitant]
     Active Substance: ROSUVASTATIN
     Indication: Hyperlipidaemia
     Dosage: 10 MG ORALLY DAILY
     Route: 048
     Dates: start: 20200825
  8. PROLIA [Concomitant]
     Active Substance: DENOSUMAB
     Indication: Osteoporosis
     Dosage: 60 MG/ML SUBCUTANEOUSLY EVERY 6 MONTHS
     Route: 058
     Dates: start: 20200825
  9. XARELTO [Concomitant]
     Active Substance: RIVAROXABAN
     Indication: Thrombosis prophylaxis
     Dosage: 10 MG ORALLY DAILY
     Route: 048
     Dates: start: 20211222
  10. ALUMINIUM HYDROXIDE;DIPHENHYDRAMINE;LIDOCAINE;MAGNESIUM HYDROXIDE [Concomitant]
     Dosage: SOLUTION 10 ML ORALLY FOUR TIMES PER DAY AS NEEDED
     Route: 048
  11. ZOFRAN [Concomitant]
     Active Substance: ONDANSETRON HYDROCHLORIDE
     Indication: Vomiting
     Dosage: 8 MG THREE TIMES ORALLY DAILY AS NEEDED
     Route: 048
     Dates: start: 20211216
  12. ZOFRAN [Concomitant]
     Active Substance: ONDANSETRON HYDROCHLORIDE
     Indication: Nausea
  13. LIDOCAINE\PRILOCAINE [Concomitant]
     Active Substance: LIDOCAINE\PRILOCAINE
     Indication: Central venous catheterisation
     Dosage: 2.5%-2.5% CREAM APPLIED TOPICALLY AS NEEDED FOR PORT ACCESS,
     Route: 061
  14. REGLAN [Concomitant]
     Active Substance: METOCLOPRAMIDE HYDROCHLORIDE
     Indication: Product used for unknown indication
     Dosage: 10 MG ORALLY 4 TIMES A DAILY WITH MEALS,
     Route: 048
  15. TYLENOL [Concomitant]
     Active Substance: ACETAMINOPHEN
     Indication: Product used for unknown indication
     Dosage: 650 MG ORALLY AS NEEDED,
     Route: 048
  16. VITAMIN D3 [Concomitant]
     Active Substance: CHOLECALCIFEROL
     Indication: Product used for unknown indication
     Dosage: 50 MCG ORALLY ONCE DAILY,
     Route: 048
  17. DULCOLAX (BISACODYL) [Concomitant]
     Active Substance: BISACODYL
     Indication: Constipation
     Dosage: 2 PILLS PER DAY

REACTIONS (2)
  - Dizziness [Recovered/Resolved with Sequelae]
  - Malignant neoplasm progression [Fatal]

NARRATIVE: CASE EVENT DATE: 20220120
